FAERS Safety Report 7915840 (Version 3)
Quarter: 2013Q1

REPORT INFORMATION
  Report Type: Spontaneous
  Country: US (occurrence: US)
  Receive Date: 20110426
  Receipt Date: 20130116
  Transmission Date: 20140127
  Serious: Yes (Hospitalization, Other)
  Sender: FDA-Public Use
  Company Number: US-MYLANLABS-2011S1007916

PATIENT
  Age: 73 Year
  Sex: Male

DRUGS (9)
  1. AZITHROMYCIN [Suspect]
     Indication: BRONCHITIS
     Dosage: 500MG THEN 250 MG DAILY FOR NEXT 4 DAYS
     Route: 065
  2. AZITHROMYCIN [Interacting]
     Indication: BRONCHITIS
     Dosage: 250 MG DAILY FOR NEXT 4 DAYS
     Route: 065
  3. SIMVASTATIN [Interacting]
     Dosage: 80 MG/DAY
     Route: 065
  4. ALLOPURINOL [Concomitant]
     Dosage: 100 MG/DAY
     Route: 065
  5. PREDNISONE [Concomitant]
     Dosage: 5 MG/DAY
     Route: 065
  6. LABETALOL [Concomitant]
     Route: 065
  7. BUMETANIDE [Concomitant]
     Route: 065
  8. AMLODIPINE [Concomitant]
     Route: 065
  9. INSULIN GLARGINE [Concomitant]
     Route: 065

REACTIONS (2)
  - Rhabdomyolysis [Recovered/Resolved]
  - Drug interaction [Recovered/Resolved]
